FAERS Safety Report 13230590 (Version 1)
Quarter: 2017Q1

REPORT INFORMATION
  Report Type: Spontaneous
  Country: US (occurrence: US)
  Receive Date: 20170214
  Receipt Date: 20170214
  Transmission Date: 20170428
  Serious: Yes (Hospitalization, Other)
  Sender: FDA-Public Use
  Company Number: US-NOVOPROD-530707

PATIENT
  Age: 71 Year
  Sex: Female
  Weight: 73.16 kg

DRUGS (3)
  1. NOVOLOG [Concomitant]
     Active Substance: INSULIN ASPART
     Indication: TYPE 2 DIABETES MELLITUS
     Dosage: SLIDING SCALE
     Route: 058
  2. TRESIBA [Suspect]
     Active Substance: INSULIN DEGLUDEC
     Indication: TYPE 2 DIABETES MELLITUS
     Dosage: 70-80 UNITS PER NIGHT
     Route: 058
     Dates: start: 201609
  3. TRADJENTA [Concomitant]
     Active Substance: LINAGLIPTIN
     Indication: TYPE 2 DIABETES MELLITUS
     Dosage: UNK

REACTIONS (8)
  - Fatigue [Unknown]
  - Blood glucose increased [Not Recovered/Not Resolved]
  - Drug dose omission [Unknown]
  - Decreased appetite [Unknown]
  - Stress [Unknown]
  - Thrombosis [Not Recovered/Not Resolved]
  - Hypersomnia [Unknown]
  - Asthenia [Unknown]

NARRATIVE: CASE EVENT DATE: 2016
